FAERS Safety Report 21538474 (Version 2)
Quarter: 2025Q2

REPORT INFORMATION
  Report Type: Spontaneous
  Country: FR (occurrence: FR)
  Receive Date: 20221102
  Receipt Date: 20250522
  Transmission Date: 20250716
  Serious: Yes (Life-Threatening, Hospitalization)
  Sender: STRIDES
  Company Number: FR-STRIDES ARCOLAB LIMITED-2022SP014253

PATIENT
  Age: 21 Day
  Sex: Female
  Weight: 0.8 kg

DRUGS (7)
  1. VANCOMYCIN [Suspect]
     Active Substance: VANCOMYCIN
     Indication: Neonatal infection
     Route: 065
  2. VANCOMYCIN [Suspect]
     Active Substance: VANCOMYCIN
     Indication: Pneumatosis intestinalis
  3. METRONIDAZOLE [Suspect]
     Active Substance: METRONIDAZOLE
     Indication: Neonatal infection
     Route: 065
  4. CEFOTAXIME [Suspect]
     Active Substance: CEFOTAXIME SODIUM
     Indication: Neonatal infection
     Route: 065
  5. CEFOTAXIME [Suspect]
     Active Substance: CEFOTAXIME SODIUM
     Indication: Pneumatosis intestinalis
  6. AMIKACIN [Suspect]
     Active Substance: AMIKACIN
     Indication: Neonatal infection
     Route: 065
  7. AMIKACIN [Suspect]
     Active Substance: AMIKACIN
     Indication: Pneumatosis intestinalis

REACTIONS (6)
  - Necrotising enterocolitis neonatal [Recovered/Resolved]
  - Condition aggravated [Recovered/Resolved]
  - Gastrointestinal ischaemia [Recovered/Resolved]
  - Systemic inflammatory response syndrome [Recovered/Resolved]
  - Subileus [Recovered/Resolved]
  - Dysbiosis [Recovered/Resolved]
